FAERS Safety Report 14371663 (Version 1)
Quarter: 2018Q1

REPORT INFORMATION
  Report Type: Spontaneous
  Country: GB (occurrence: GB)
  Receive Date: 20180110
  Receipt Date: 20180110
  Transmission Date: 20180509
  Serious: Yes (Other)
  Sender: FDA-Public Use
  Company Number: GB-GLAXOSMITHKLINE-GB2018000893

PATIENT
  Age: 79 Year
  Sex: Female

DRUGS (1)
  1. HYOSCINE (HYOSCINE HYDROBROMIDE) [Suspect]
     Active Substance: SCOPOLAMINE
     Indication: SALIVARY HYPERSECRETION
     Dosage: UNK
     Route: 062

REACTIONS (5)
  - Hallucination [Unknown]
  - Disorientation [Unknown]
  - Balance disorder [Unknown]
  - Psychotic disorder [Unknown]
  - Ocular hyperaemia [Unknown]

NARRATIVE: CASE EVENT DATE: 20171215
